FAERS Safety Report 8465651-6 (Version None)
Quarter: 2012Q2

REPORT INFORMATION
  Report Type: 
  Country: None (occurrence: None)
  Receive Date: 20120626
  Receipt Date: 20120615
  Transmission Date: 20120825
  Serious: Yes (Other)
  Sender: FDA-Public Use
  Company Number: JP-ASTRAZENECA-2012SE42007

PATIENT
  Sex: Male

DRUGS (3)
  1. MAGLAX [Concomitant]
     Route: 048
  2. OGIKENCHUTO [Concomitant]
     Route: 048
  3. SEROQUEL [Suspect]
     Dosage: 12.5 MG (HALF OF 25 MG TABLET) DAILY
     Route: 048

REACTIONS (2)
  - LARGE INTESTINAL ULCER HAEMORRHAGE [None]
  - INTENTIONAL DRUG MISUSE [None]
